FAERS Safety Report 23360588 (Version 1)
Quarter: 2024Q1

REPORT INFORMATION
  Report Type: Spontaneous
  Country: FR (occurrence: FR)
  Receive Date: 20240103
  Receipt Date: 20240103
  Transmission Date: 20240409
  Serious: Yes (Other)
  Sender: FDA-Public Use
  Company Number: FR-AFSSAPS-LM2023000730

PATIENT
  Age: 17 Year
  Sex: Male
  Weight: 54 kg

DRUGS (2)
  1. METRONIDAZOLE [Suspect]
     Active Substance: METRONIDAZOLE
     Indication: Gastrointestinal bacterial overgrowth
     Dosage: 750 MILLIGRAM, ONCE A DAY
     Route: 048
     Dates: start: 20231129, end: 20231207
  2. RIFAXIMIN [Suspect]
     Active Substance: RIFAXIMIN
     Indication: Gastrointestinal bacterial overgrowth
     Dosage: 1650 MILLIGRAM, ONCE A DAY
     Route: 048
     Dates: start: 20231129, end: 20231207

REACTIONS (2)
  - Tinnitus [Recovered/Resolved]
  - Deafness [Recovered/Resolved]

NARRATIVE: CASE EVENT DATE: 20231206
